FAERS Safety Report 9117405 (Version 2)
Quarter: 2013Q2

REPORT INFORMATION
  Report Type: Spontaneous
  Country: US (occurrence: US)
  Receive Date: 20130225
  Receipt Date: 20130501
  Transmission Date: 20140414
  Serious: Yes (Other)
  Sender: FDA-Public Use
  Company Number: US-BIOGENIDEC-2013BI017342

PATIENT
  Age: 35 Year
  Sex: Male

DRUGS (3)
  1. AVONEX [Suspect]
     Indication: MULTIPLE SCLEROSIS
     Route: 030
     Dates: start: 20120710, end: 20121121
  2. AVONEX [Suspect]
     Indication: MULTIPLE SCLEROSIS
     Route: 030
  3. INTRATHECAL BACLOFEN [Concomitant]

REACTIONS (4)
  - Sepsis [Recovered/Resolved]
  - Folliculitis [Recovered/Resolved]
  - Necrosis [Unknown]
  - Staphylococcal sepsis [Unknown]
